FAERS Safety Report 15058946 (Version 4)
Quarter: 2019Q2

REPORT INFORMATION
  Report Type: Report from Study
  Country: DE (occurrence: DE)
  Receive Date: 20180625
  Receipt Date: 20190515
  Transmission Date: 20190711
  Serious: Yes (Hospitalization, Other)
  Sender: FDA-Public Use
  Company Number: DE-PFIZER INC-2018251640

PATIENT
  Age: 47 Year
  Sex: Female
  Weight: 61 kg

DRUGS (11)
  1. FLUOROURACIL. [Suspect]
     Active Substance: FLUOROURACIL
     Indication: COLORECTAL CANCER METASTATIC
     Dosage: 690-540 MG, UNK
     Route: 040
     Dates: start: 20180412
  2. METAMIZOLE [Concomitant]
     Active Substance: METAMIZOLE
     Dosage: 500 MG, 4X/DAY
     Route: 048
  3. MOVICOL [Concomitant]
     Active Substance: POLYETHYLENE GLYCOL 3350\POTASSIUM CHLORIDE\SODIUM BICARBONATE\SODIUM CHLORIDE
     Indication: CONSTIPATION
     Dosage: 1 DF, AS NEEDED
     Route: 048
  4. FLUOROURACIL. [Suspect]
     Active Substance: FLUOROURACIL
     Dosage: 2060-3200 MG
     Route: 042
     Dates: start: 20180412
  5. GRANISETRON [Concomitant]
     Active Substance: GRANISETRON
     Dosage: 1 MG, AS NEEDED
     Route: 048
  6. PANITUMUMAB [Suspect]
     Active Substance: PANITUMUMAB
     Indication: COLORECTAL CANCER METASTATIC
     Dosage: 366 MG, UNK
     Route: 042
     Dates: start: 20180412
  7. PANITUMUMAB [Suspect]
     Active Substance: PANITUMUMAB
     Dosage: 350 MG, UNK
     Route: 042
     Dates: start: 20180426
  8. CALCIUM FOLINATE [Suspect]
     Active Substance: LEUCOVORIN CALCIUM
     Indication: COLORECTAL CANCER METASTATIC
     Dosage: 690-540 MG, UNK
     Route: 065
     Dates: start: 20180412
  9. IRINOTECAN [Suspect]
     Active Substance: IRINOTECAN
     Indication: COLORECTAL CANCER METASTATIC
     Dosage: 310-240 MG, UNK
     Route: 065
     Dates: start: 20180412
  10. HYDROMORPHONE [Concomitant]
     Active Substance: HYDROMORPHONE
     Dosage: 1.3 MG, AS NEEDED
     Route: 048
  11. LAXOBERAL [Concomitant]
     Active Substance: SODIUM PICOSULFATE
     Indication: CONSTIPATION
     Dosage: 150 MG, 1X/DAY
     Route: 048

REACTIONS (1)
  - Ileus [Unknown]

NARRATIVE: CASE EVENT DATE: 20180523
